FAERS Safety Report 7236883-X (Version None)
Quarter: 2011Q1

REPORT INFORMATION
  Report Type: 
  Country: None (occurrence: None)
  Receive Date: 20110120
  Receipt Date: 20110111
  Transmission Date: 20110831
  Serious: No
  Sender: FDA-Public Use
  Company Number: GB-BAXTER-2011BH000754

PATIENT
  Age: 85 Year
  Sex: Male

DRUGS (1)
  1. EXTRANEAL [Suspect]
     Indication: PERITONEAL DIALYSIS
     Route: 033
     Dates: start: 20100701

REACTIONS (4)
  - PERITONEAL EFFLUENT LEUKOCYTE COUNT INCREASED [None]
  - CONFUSIONAL STATE [None]
  - FALL [None]
  - MALAISE [None]
